FAERS Safety Report 5529493-3 (Version None)
Quarter: 2007Q4

REPORT INFORMATION
  Report Type: 
  Country: None (occurrence: None)
  Receive Date: 20071129
  Receipt Date: 20071119
  Transmission Date: 20080405
  Serious: Yes (Hospitalization)
  Sender: FDA-Public Use
  Company Number: FR-ABBOTT-07P-056-0425275-00

PATIENT
  Age: 39 Year
  Sex: Female

DRUGS (1)
  1. KALETRA [Suspect]
     Indication: HIV INFECTION
     Route: 048
     Dates: start: 20061226, end: 20070918

REACTIONS (4)
  - DYSKINESIA [None]
  - MYOCLONUS [None]
  - PARKINSONISM [None]
  - TREMOR [None]
